FAERS Safety Report 16474341 (Version 1)
Quarter: 2019Q2

REPORT INFORMATION
  Report Type: Spontaneous
  Country: US (occurrence: US)
  Receive Date: 20190625
  Receipt Date: 20190625
  Transmission Date: 20190711
  Serious: No
  Sender: FDA-Public Use
  Company Number: US-PFIZER INC-2019262499

PATIENT
  Sex: Female

DRUGS (1)
  1. CELEBREX [Suspect]
     Active Substance: CELECOXIB
     Dosage: UNK

REACTIONS (5)
  - Burning sensation [Unknown]
  - Pain in extremity [Unknown]
  - Peripheral swelling [Unknown]
  - Insomnia [Unknown]
  - Limb mass [Unknown]

NARRATIVE: CASE EVENT DATE: 20190617
